FAERS Safety Report 9280040 (Version 7)
Quarter: 2014Q2

REPORT INFORMATION
  Report Type: Spontaneous
  Country: US (occurrence: US)
  Receive Date: 20130509
  Receipt Date: 20140415
  Transmission Date: 20141212
  Serious: No
  Sender: FDA-Public Use
  Company Number: US-009507513-1305USA003348

PATIENT
  Sex: Male

DRUGS (13)
  1. VICTRELIS [Suspect]
     Indication: CHRONIC HEPATITIS C
     Dosage: UNK
     Route: 065
     Dates: start: 20130406
  2. VICTRELIS [Suspect]
     Indication: FIBROSIS
  3. RIBASPHERE [Suspect]
     Indication: CHRONIC HEPATITIS C
     Dosage: 1200MG DAILY IN DIVIDED DOSES; DIVIDED DOSES 600/600. 1 IN 1 D
     Route: 048
     Dates: start: 20130406, end: 20140307
  4. RIBASPHERE [Suspect]
     Indication: FIBROSIS
  5. PEGASYS [Suspect]
     Indication: CHRONIC HEPATITIS C
     Dosage: 180 MICROGRAM, QW, PROCLICK
     Route: 058
     Dates: start: 20130406, end: 20140301
  6. PEGASYS [Suspect]
     Indication: FIBROSIS
  7. PREVACID [Concomitant]
  8. AMARYL [Concomitant]
  9. TRILEPTAL [Concomitant]
  10. LAMICTAL [Concomitant]
  11. ZETIA [Concomitant]
  12. BENICAR [Concomitant]
  13. VICTRELIS [Concomitant]
     Dosage: UNK
     Route: 048
     Dates: start: 201402

REACTIONS (11)
  - Speech disorder [Unknown]
  - Mouth ulceration [Unknown]
  - Nausea [Unknown]
  - Headache [Unknown]
  - Fatigue [Unknown]
  - White blood cell count decreased [Unknown]
  - Anaemia [Unknown]
  - Malaise [Unknown]
  - Pruritus [Unknown]
  - Dry skin [Unknown]
  - Injection site reaction [Unknown]
